FAERS Safety Report 17727457 (Version 1)
Quarter: 2020Q2

REPORT INFORMATION
  Report Type: Spontaneous
  Country: SG (occurrence: SG)
  Receive Date: 20200430
  Receipt Date: 20200430
  Transmission Date: 20200714
  Serious: Yes (Life-Threatening, Other)
  Sender: FDA-Public Use
  Company Number: NVSC2020SG114935

PATIENT
  Age: 68 Year
  Sex: Female

DRUGS (4)
  1. BOSENTAN. [Concomitant]
     Active Substance: BOSENTAN
     Indication: CARDIAC FAILURE
     Dosage: 62.5 MG, BID
     Route: 065
  2. FUROSEMIDE. [Concomitant]
     Active Substance: FUROSEMIDE
     Indication: CARDIAC FAILURE
     Dosage: 40 MG, BID
     Route: 065
  3. DIGOXIN. [Suspect]
     Active Substance: DIGOXIN
     Indication: CARDIAC FAILURE
     Dosage: 62.5 MCG, QD
     Route: 065
  4. TADALAFIL. [Concomitant]
     Active Substance: TADALAFIL
     Indication: CARDIAC FAILURE
     Dosage: 20 MG, QD
     Route: 065

REACTIONS (7)
  - Cardiorenal syndrome [Unknown]
  - Hyperkalaemia [Unknown]
  - Cardiac failure acute [Unknown]
  - Arrhythmia [Recovered/Resolved]
  - Confusional state [Unknown]
  - Acute kidney injury [Unknown]
  - Cardiogenic shock [Unknown]
